FAERS Safety Report 9232629 (Version 1)
Quarter: 2013Q2

REPORT INFORMATION
  Report Type: Spontaneous
  Country: AT (occurrence: None)
  Receive Date: 20130412
  Receipt Date: 20130412
  Transmission Date: 20140414
  Serious: No
  Sender: FDA-Public Use
  Company Number: B0882395A

PATIENT
  Age: 48 Year
  Sex: Male

DRUGS (2)
  1. EPIVIR-HBV [Suspect]
     Indication: ANTIVIRAL PROPHYLAXIS
  2. PREDNISOLONE [Concomitant]

REACTIONS (1)
  - Hepatic cirrhosis [None]
